FAERS Safety Report 7197936-8 (Version None)
Quarter: 2010Q4

REPORT INFORMATION
  Report Type: 
  Country: None (occurrence: None)
  Receive Date: 20101227
  Receipt Date: 20101221
  Transmission Date: 20110411
  Serious: Yes (Hospitalization, Other)
  Sender: FDA-Public Use
  Company Number: CN-ROCHE-743212

PATIENT
  Age: 57 Year
  Sex: Male
  Weight: 60 kg

DRUGS (3)
  1. XELODA [Suspect]
     Indication: COLON CANCER
     Route: 048
     Dates: start: 20100603, end: 20101010
  2. OXALIPLATIN [Concomitant]
     Indication: COLON CANCER
     Route: 041
     Dates: start: 20100603, end: 20101002
  3. VITAMIN B [Concomitant]
     Dates: start: 20101010

REACTIONS (3)
  - HYPOAESTHESIA [None]
  - PLATELET COUNT DECREASED [None]
  - PULMONARY FIBROSIS [None]
